FAERS Safety Report 16677339 (Version 1)
Quarter: 2019Q3

REPORT INFORMATION
  Report Type: Spontaneous
  Country: JP (occurrence: JP)
  Receive Date: 20190807
  Receipt Date: 20190807
  Transmission Date: 20191004
  Serious: Yes (Other)
  Sender: FDA-Public Use
  Company Number: JP-TEVA-2019-JP-1089136

PATIENT
  Age: 36 Year
  Sex: Female

DRUGS (5)
  1. MIZORIBINE [Suspect]
     Active Substance: MIZORIBINE
     Indication: GLOMERULONEPHRITIS MEMBRANOUS
     Dosage: 150 MILLIGRAM DAILY; ON DAY 28 OF HOSPITALIZATION
     Route: 065
  2. PREDNISOLONE. [Suspect]
     Active Substance: PREDNISOLONE
     Indication: GLOMERULONEPHRITIS MEMBRANOUS
     Dosage: 50 MILLIGRAM DAILY; ON DAY 14 OF HOSPITALIZATION
     Route: 065
  3. PREDNISOLONE. [Suspect]
     Active Substance: PREDNISOLONE
     Dosage: 60 MILLIGRAM DAILY; ON DAY 29 OF HOSPITALIZATION
     Route: 065
  4. PREDNISOLONE. [Suspect]
     Active Substance: PREDNISOLONE
     Dosage: 40 MILLIGRAM DAILY;
     Route: 065
  5. CICLOSPORIN [Suspect]
     Active Substance: CYCLOSPORINE
     Indication: GLOMERULONEPHRITIS MEMBRANOUS
     Dosage: 150 MILLIGRAM DAILY; ON DAY 49 OF HOSPITALIZATION
     Route: 065

REACTIONS (2)
  - Herpes zoster disseminated [Unknown]
  - Varicella zoster virus infection [Unknown]
